FAERS Safety Report 4280779-2 (Version None)
Quarter: 2004Q1

REPORT INFORMATION
  Report Type: 
  Country: None (occurrence: None)
  Receive Date: 20040128
  Receipt Date: 20040128
  Transmission Date: 20041129
  Serious: Yes (Disabling)
  Sender: FDA-Public Use
  Company Number: None

PATIENT
  Sex: Female
  Weight: 52.1637 kg

DRUGS (5)
  1. ETANERCEPT 25 MG [Suspect]
     Indication: RHEUMATOID ARTHRITIS
     Dosage: 25 MG BIW SUBCUTANEOUS
     Route: 058
     Dates: start: 20000707, end: 20031106
  2. METHOTREXATE [Concomitant]
  3. ATENOLOL [Concomitant]
  4. FOSAMEX [Concomitant]
  5. STEROID [Concomitant]

REACTIONS (4)
  - CONVULSION [None]
  - HYPERTENSION [None]
  - MULTIPLE SCLEROSIS [None]
  - PARAESTHESIA [None]
